FAERS Safety Report 5374036-0 (Version None)
Quarter: 2007Q2

REPORT INFORMATION
  Report Type: 
  Country: None (occurrence: None)
  Receive Date: 20070627
  Receipt Date: 20070619
  Transmission Date: 20071010
  Serious: Yes (Hospitalization)
  Sender: FDA-Public Use
  Company Number: 163-20785-07051168

PATIENT
  Age: 58 Year
  Sex: Female

DRUGS (16)
  1. THALOMID [Suspect]
     Indication: MULTIPLE MYELOMA
     Dosage: 100 MG, 1 IN 1 D, ORAL
     Route: 048
     Dates: start: 20060601, end: 20061122
  2. THALOMID [Suspect]
     Indication: MULTIPLE MYELOMA
     Dosage: 100 MG, 1 IN 1 D, ORAL
     Route: 048
     Dates: start: 20070601
  3. DEXAMETHASONE 0.5MG TAB [Suspect]
     Indication: MULTIPLE MYELOMA
     Dosage: PULSE - DAILY
     Dates: start: 20060601, end: 20061122
  4. DEXAMETHASONE 0.5MG TAB [Suspect]
     Indication: MULTIPLE MYELOMA
     Dosage: PULSE - DAILY
     Dates: start: 20070601
  5. CELEXA [Concomitant]
  6. LISINOPRIL [Concomitant]
  7. CYCLOBENZAPRINE HCL [Concomitant]
  8. SULAR [Concomitant]
  9. ATENOLOL [Concomitant]
  10. CALCIUM          (CALCIUM) [Concomitant]
  11. VITAMIN D [Concomitant]
  12. AMBIEN [Concomitant]
  13. ASPIRIN [Concomitant]
  14. HYDROCHLOROTHIAZIDE [Concomitant]
  15. MULTIVITAMIN [Concomitant]
  16. PERCOCET [Concomitant]

REACTIONS (10)
  - ATRIAL FIBRILLATION [None]
  - HYPERKALAEMIA [None]
  - IMPAIRED HEALING [None]
  - OSTEOMYELITIS [None]
  - PLASMACYTOMA [None]
  - POST PROCEDURAL COMPLICATION [None]
  - RENAL FAILURE ACUTE [None]
  - RHABDOMYOLYSIS [None]
  - SOFT TISSUE NECROSIS [None]
  - WOUND INFECTION [None]
